FAERS Safety Report 18449140 (Version 1)
Quarter: 2020Q4

REPORT INFORMATION
  Report Type: Spontaneous
  Country: US (occurrence: US)
  Receive Date: 20201102
  Receipt Date: 20201102
  Transmission Date: 20210114
  Serious: Yes (Other)
  Sender: FDA-Public Use
  Company Number: US-SUN PHARMACEUTICAL INDUSTRIES LTD-2020R1-265214

PATIENT
  Age: 21 Year
  Sex: Female

DRUGS (1)
  1. ABSORICA LD [Suspect]
     Active Substance: ISOTRETINOIN
     Indication: PRODUCT USED FOR UNKNOWN INDICATION
     Dosage: 24 MILLIGRAM, BID
     Route: 065
     Dates: start: 20201007, end: 202010

REACTIONS (9)
  - Intracranial pressure increased [Unknown]
  - Intraocular pressure increased [Unknown]
  - Chest pain [Unknown]
  - Muscle spasms [Unknown]
  - Myalgia [Unknown]
  - Headache [Unknown]
  - Medication error [Unknown]
  - Back pain [Unknown]
  - Eye pain [Unknown]

NARRATIVE: CASE EVENT DATE: 202010
